FAERS Safety Report 24869954 (Version 3)
Quarter: 2025Q4

REPORT INFORMATION
  Report Type: Spontaneous
  Country: US (occurrence: US)
  Receive Date: 20250121
  Receipt Date: 20251010
  Transmission Date: 20260118
  Serious: No
  Sender: MERCK SHARP & DOHME LLC
  Company Number: US-009507513-2501USA005317

PATIENT
  Age: 79 Year
  Sex: Female

DRUGS (5)
  1. KEYTRUDA [Suspect]
     Active Substance: PEMBROLIZUMAB
     Indication: Neuroendocrine carcinoma of the skin
     Dosage: 200 MG EVERY 3 WEEKS
     Route: 042
     Dates: start: 202501
  2. KEYTRUDA [Suspect]
     Active Substance: PEMBROLIZUMAB
     Indication: Neuroendocrine carcinoma of the skin
     Dosage: DOSE DESCRIPTION : INFUSION EVERY 3 WEEKS
     Route: 042
     Dates: start: 20250110, end: 20250110
  3. KEYTRUDA [Suspect]
     Active Substance: PEMBROLIZUMAB
     Indication: Neuroendocrine carcinoma of the skin
     Dosage: DOSE DESCRIPTION : INFUSION EVERY 3 WEEKS
     Route: 042
     Dates: start: 20250131
  4. LISINOPRIL [Concomitant]
     Active Substance: LISINOPRIL
     Dosage: DOSE DESCRIPTION : 5 MILLIGRAM?CONCENTRATION: 5 MILLIGRAM
  5. VITAMINS NOS [Concomitant]
     Active Substance: VITAMINS

REACTIONS (20)
  - Neck pain [Unknown]
  - Pain [Unknown]
  - Influenza like illness [Unknown]
  - Arthralgia [Recovered/Resolved]
  - Nausea [Not Recovered/Not Resolved]
  - Arthralgia [Unknown]
  - Food intolerance [Not Recovered/Not Resolved]
  - Gastrointestinal disorder [Unknown]
  - Dyspnoea [Unknown]
  - Asthenia [Unknown]
  - Dizziness [Unknown]
  - Dizziness [Unknown]
  - Gait disturbance [Unknown]
  - Pruritus [Unknown]
  - Movement disorder [Unknown]
  - Insomnia [Unknown]
  - Asthenia [Unknown]
  - Diarrhoea [Unknown]
  - Product use in unapproved indication [Unknown]
  - Illness [Unknown]

NARRATIVE: CASE EVENT DATE: 20250101
